FAERS Safety Report 16632385 (Version 1)
Quarter: 2019Q3

REPORT INFORMATION
  Report Type: Spontaneous
  Country: US (occurrence: US)
  Receive Date: 20190725
  Receipt Date: 20190725
  Transmission Date: 20191004
  Serious: No
  Sender: FDA-Public Use
  Company Number: US-ABBVIE-19S-163-2769500-00

PATIENT
  Age: 79 Year
  Sex: Female

DRUGS (1)
  1. SYNTHROID [Suspect]
     Active Substance: LEVOTHYROXINE SODIUM
     Indication: PRODUCT USED FOR UNKNOWN INDICATION
     Route: 048

REACTIONS (13)
  - Fall [Unknown]
  - Facial pain [Unknown]
  - Headache [Unknown]
  - Temperature intolerance [Unknown]
  - Weight decreased [Unknown]
  - Hypersensitivity [Unknown]
  - Dizziness [Unknown]
  - Limb discomfort [Unknown]
  - Nervousness [Unknown]
  - Bladder disorder [Unknown]
  - Constipation [Unknown]
  - Tremor [Unknown]
  - Anxiety [Unknown]
